FAERS Safety Report 11913226 (Version 1)
Quarter: 2016Q1

REPORT INFORMATION
  Report Type: Spontaneous
  Country: US (occurrence: None)
  Receive Date: 20160112
  Receipt Date: 20160112
  Transmission Date: 20160526
  Serious: Yes (Hospitalization, Disabling)
  Sender: FDA-Public Use
  Company Number: None

PATIENT
  Age: 30 Year
  Sex: Male
  Weight: 113.4 kg

DRUGS (1)
  1. LEVOFLOXACIN ORTHO-MCNEIL JANSSEN PHARM [Suspect]
     Active Substance: LEVOFLOXACIN
     Indication: PNEUMONIA
     Dosage: 7
     Route: 048
     Dates: start: 20160103, end: 20160104

REACTIONS (2)
  - Nerve injury [None]
  - Cerebrovascular accident [None]

NARRATIVE: CASE EVENT DATE: 20160104
